FAERS Safety Report 18190921 (Version 1)
Quarter: 2020Q3

REPORT INFORMATION
  Report Type: Spontaneous
  Country: CA (occurrence: CA)
  Receive Date: 20200825
  Receipt Date: 20200825
  Transmission Date: 20201103
  Serious: Yes (Hospitalization, Disabling)
  Sender: FDA-Public Use
  Company Number: CA-TEVA-2020-CA-1817454

PATIENT
  Age: 4 Day
  Sex: Male

DRUGS (14)
  1. CARBOPLATIN. [Suspect]
     Active Substance: CARBOPLATIN
     Indication: CHEMOTHERAPY
     Route: 042
  2. CARBOPLATIN. [Suspect]
     Active Substance: CARBOPLATIN
     Route: 042
  3. ETOPOSIDE. [Suspect]
     Active Substance: ETOPOSIDE
     Indication: CHEMOTHERAPY
     Route: 042
  4. ONDANSETRON [Concomitant]
     Active Substance: ONDANSETRON
  5. ETOPOSIDE. [Suspect]
     Active Substance: ETOPOSIDE
     Route: 042
  6. DEXMEDETOMIDINE. [Concomitant]
     Active Substance: DEXMEDETOMIDINE
  7. MORPHINE [Concomitant]
     Active Substance: MORPHINE
  8. VANCOMYCIN [Concomitant]
     Active Substance: VANCOMYCIN
  9. ETOPOSIDE. [Suspect]
     Active Substance: ETOPOSIDE
     Route: 042
  10. FLUCONAZOLE. [Concomitant]
     Active Substance: FLUCONAZOLE
  11. AMPICILLIN [Concomitant]
     Active Substance: AMPICILLIN
  12. BLEOMYCIN SULPHATE FOR INJECTION USP [Suspect]
     Active Substance: BLEOMYCIN SULFATE
     Indication: CHEMOTHERAPY
     Dosage: 2 UNITS
     Route: 042
  13. TAZOCIN [Concomitant]
     Active Substance: PIPERACILLIN SODIUM\TAZOBACTAM SODIUM
  14. DEXAMETHASONE. [Concomitant]
     Active Substance: DEXAMETHASONE

REACTIONS (8)
  - Neutropenia [Unknown]
  - Thrombocytopenia [Unknown]
  - Aplastic anaemia [Unknown]
  - White blood cell count increased [Unknown]
  - Pancytopenia [Unknown]
  - Neutrophil count increased [Unknown]
  - Monocyte count increased [Unknown]
  - Nausea [Unknown]
